FAERS Safety Report 16024227 (Version 1)
Quarter: 2019Q1

REPORT INFORMATION
  Report Type: Spontaneous
  Country: BR (occurrence: BR)
  Receive Date: 20190301
  Receipt Date: 20190301
  Transmission Date: 20190418
  Serious: Yes (Other)
  Sender: FDA-Public Use
  Company Number: BR-009507513-1902BRA009970

PATIENT
  Sex: Female
  Weight: 80 kg

DRUGS (11)
  1. JANUMET XR [Suspect]
     Active Substance: METFORMIN HYDROCHLORIDE\SITAGLIPTIN PHOSPHATE
     Indication: TYPE 1 DIABETES MELLITUS
     Dosage: 1 TABLET BY THE MORNING AND 1 TABLET AT NIGHT
     Route: 048
     Dates: start: 2015, end: 201901
  2. ASPIRIN. [Concomitant]
     Active Substance: ASPIRIN
     Indication: ANTICOAGULANT THERAPY
     Dosage: 1 TABLET AFTER LUNCH, QD
     Route: 048
     Dates: start: 2009
  3. ISOPHANE INSULIN [Concomitant]
     Active Substance: INSULIN NOS
     Dosage: 26UI TO 30UI AT NIGHT
  4. NATRILIX [Concomitant]
     Active Substance: INDAPAMIDE
     Indication: HYPERTENSION
     Dosage: 1 TABLET, QD
     Route: 048
     Dates: start: 2009
  5. THIAMINE. [Concomitant]
     Active Substance: THIAMINE
     Indication: PAIN IN EXTREMITY
     Dosage: 1 TABLET BY THE MORNING, QD
     Route: 048
     Dates: start: 2013
  6. JANUMET XR [Suspect]
     Active Substance: METFORMIN HYDROCHLORIDE\SITAGLIPTIN PHOSPHATE
     Dosage: 1 TABLET, BID
     Route: 048
     Dates: start: 201901
  7. LIVALO [Concomitant]
     Active Substance: PITAVASTATIN CALCIUM
     Indication: BLOOD TRIGLYCERIDES INCREASED
  8. PRESSAT [Concomitant]
     Active Substance: AMLODIPINE BESYLATE
     Indication: HYPERTENSION
     Dosage: 1 1 TABLET BY THE MORNING AND 1 TABLET AT NIGHT
     Route: 048
     Dates: start: 201901
  9. LIVALO [Concomitant]
     Active Substance: PITAVASTATIN CALCIUM
     Indication: BLOOD CHOLESTEROL INCREASED
     Dosage: 1 TABLET AT NIGHT, QD
     Route: 048
  10. ISOPHANE INSULIN [Concomitant]
     Active Substance: INSULIN NOS
     Indication: TYPE 1 DIABETES MELLITUS
     Dosage: 46UI BY THE MORNING
  11. ENALAPRIL MALEATE. [Concomitant]
     Active Substance: ENALAPRIL MALEATE
     Indication: HYPERTENSION
     Dosage: 1 TABLET BY THE MORNING AND 1 TABLET AT NIGHT
     Route: 048
     Dates: start: 2009

REACTIONS (10)
  - Diabetic retinal oedema [Unknown]
  - Product use in unapproved indication [Unknown]
  - Retinopathy [Unknown]
  - Cataract [Unknown]
  - Cough [Recovered/Resolved]
  - Varicose vein [Unknown]
  - Inappropriate schedule of product administration [Unknown]
  - Blood glucose increased [Unknown]
  - Product packaging quantity issue [Unknown]
  - Product dose omission [Unknown]

NARRATIVE: CASE EVENT DATE: 2015
